FAERS Safety Report 7515940-4 (Version None)
Quarter: 2011Q2

REPORT INFORMATION
  Report Type: 
  Country: None (occurrence: None)
  Receive Date: 20110520
  Receipt Date: 20110512
  Transmission Date: 20111010
  Serious: Yes (Death)
  Sender: FDA-Public Use
  Company Number: UTC-005147

PATIENT
  Age: 66 Year
  Sex: Female
  Weight: 63.6 kg

DRUGS (6)
  1. REMODULIN [Suspect]
     Dosage: SUBCUTANEOUS
     Route: 058
     Dates: start: 20100904
  2. OXYGEN (OXYGEN) [Concomitant]
  3. COZAAR [Concomitant]
  4. VICODIN [Concomitant]
  5. REVATIO [Concomitant]
  6. DIURETIC (DIURETICS) [Concomitant]

REACTIONS (1)
  - DEATH [None]
